FAERS Safety Report 8587468-4 (Version None)
Quarter: 2012Q3

REPORT INFORMATION
  Report Type: 
  Country: None (occurrence: None)
  Receive Date: 20120810
  Receipt Date: 20120731
  Transmission Date: 20120928
  Serious: No
  Sender: FDA-Public Use
  Company Number: US-ASTRAZENECA-2012SE54221

PATIENT
  Age: 70 Year
  Sex: Female
  Weight: 63.5 kg

DRUGS (4)
  1. CALCIUM WITH VITAMIN D [Concomitant]
  2. SEROQUEL [Suspect]
     Indication: DEPRESSION
     Route: 048
     Dates: start: 20060101
  3. SEROQUEL [Suspect]
     Indication: INSOMNIA
     Route: 048
     Dates: start: 20060101
  4. LEXAPRO [Concomitant]

REACTIONS (5)
  - TONGUE BLISTERING [None]
  - GLOSSITIS [None]
  - GLOSSODYNIA [None]
  - ARTHROPATHY [None]
  - SWOLLEN TONGUE [None]
